FAERS Safety Report 19937788 (Version 1)
Quarter: 2021Q4

REPORT INFORMATION
  Report Type: Spontaneous
  Country: CN (occurrence: CN)
  Receive Date: 20211011
  Receipt Date: 20211011
  Transmission Date: 20220304
  Serious: Yes (Hospitalization)
  Sender: FDA-Public Use
  Company Number: CN-ROCHE-2931032

PATIENT
  Age: 47 Year
  Sex: Female
  Weight: 64 kg

DRUGS (6)
  1. PERJETA [Suspect]
     Active Substance: PERTUZUMAB
     Indication: Breast cancer
     Route: 041
     Dates: start: 20210906, end: 20210906
  2. HERCEPTIN [Suspect]
     Active Substance: TRASTUZUMAB
     Indication: Breast cancer
     Route: 041
     Dates: start: 20210906, end: 20210906
  3. DOCETAXEL [Suspect]
     Active Substance: DOCETAXEL
     Indication: Breast cancer
     Route: 041
     Dates: start: 20210907, end: 20210907
  4. CARBOPLATIN [Suspect]
     Active Substance: CARBOPLATIN
     Indication: Breast cancer
     Route: 041
     Dates: start: 20210908, end: 20210908
  5. GRANISETRON HYDROCHLORIDE AND SODIUM CHLORIDE [Concomitant]
     Indication: Vomiting
     Route: 041
     Dates: start: 20210907, end: 20210909
  6. GRANISETRON HYDROCHLORIDE AND SODIUM CHLORIDE [Concomitant]
     Indication: Nausea

REACTIONS (1)
  - Myelosuppression [Recovering/Resolving]

NARRATIVE: CASE EVENT DATE: 20210925
